FAERS Safety Report 7149005-0 (Version None)
Quarter: 2010Q4

REPORT INFORMATION
  Report Type: 
  Country: None (occurrence: None)
  Receive Date: 20101209
  Receipt Date: 20101203
  Transmission Date: 20110411
  Serious: Yes (Other)
  Sender: FDA-Public Use
  Company Number: GB-PFIZER INC-2010164592

PATIENT

DRUGS (1)
  1. SPIRONOLACTONE [Suspect]

REACTIONS (2)
  - ASCITES [None]
  - DRUG INTOLERANCE [None]
